FAERS Safety Report 9399026 (Version 2)
Quarter: 2013Q3

REPORT INFORMATION
  Report Type: Spontaneous
  Country: FR (occurrence: FR)
  Receive Date: 20130715
  Receipt Date: 20130813
  Transmission Date: 20140515
  Serious: Yes (Hospitalization)
  Sender: FDA-Public Use
  Company Number: FR-PFIZER INC-2013203438

PATIENT
  Age: 40 Year
  Sex: Female

DRUGS (4)
  1. SOLU-MEDROL [Suspect]
     Indication: MULTIPLE SCLEROSIS RELAPSE
     Dosage: 1 G, 1X/DAY
     Route: 042
     Dates: start: 20111221, end: 20111223
  2. SOLU-MEDROL [Suspect]
     Dosage: 1 G, 1X/DAY
     Route: 042
     Dates: start: 201212, end: 201212
  3. LAMALINE (FRANCE) [Concomitant]
     Dosage: UNK
     Route: 048
     Dates: start: 20111223, end: 20120102
  4. ADEPAL [Concomitant]
     Indication: CONTRACEPTION

REACTIONS (2)
  - Hepatitis [Recovered/Resolved]
  - Pruritus [Recovered/Resolved]
